FAERS Safety Report 15075441 (Version 2)
Quarter: 2023Q4

REPORT INFORMATION
  Report Type: Report from Study
  Country: US (occurrence: US)
  Receive Date: 20180627
  Receipt Date: 20231128
  Transmission Date: 20240110
  Serious: Yes (Other)
  Sender: FDA-Public Use
  Company Number: US-SAOL THERAPEUTICS-2018SAO00648

PATIENT
  Age: 45 Year

DRUGS (19)
  1. BACLOFEN [Suspect]
     Active Substance: BACLOFEN
     Dosage: 120.03 ?G, \DAY
     Route: 037
  2. BACLOFEN [Suspect]
     Active Substance: BACLOFEN
     Dosage: 149.14 ?G, \DAY MAX
     Route: 037
  3. BACLOFEN [Suspect]
     Active Substance: BACLOFEN
     Dosage: 143.76 ?G, \DAY
     Route: 037
     Dates: start: 20180319
  4. BACLOFEN [Suspect]
     Active Substance: BACLOFEN
     Dosage: 172.28 ?G, \DAY, MAX
     Route: 037
     Dates: start: 20180319
  5. DILAUDID [Suspect]
     Active Substance: HYDROMORPHONE HYDROCHLORIDE
     Dosage: 1.500 MG, \DAY
     Route: 037
  6. DILAUDID [Suspect]
     Active Substance: HYDROMORPHONE HYDROCHLORIDE
     Dosage: 1.864 MG, \DAY
     Route: 037
  7. DILAUDID [Suspect]
     Active Substance: HYDROMORPHONE HYDROCHLORIDE
     Dosage: UNK
     Route: 037
     Dates: start: 20180319
  8. BUPIVACAINE [Suspect]
     Active Substance: BUPIVACAINE
     Dosage: 18.004 MG, \DAY
     Route: 037
  9. BUPIVACAINE [Suspect]
     Active Substance: BUPIVACAINE
     Dosage: 22.371 MG, \DAY MAX
     Route: 037
  10. BUPIVACAINE [Suspect]
     Active Substance: BUPIVACAINE
     Dosage: 21.564 MG, \DAY
     Route: 037
     Dates: start: 20180319
  11. BUPIVACAINE [Suspect]
     Active Substance: BUPIVACAINE
     Dosage: 25.842 MG, \DAY, MAX
     Route: 037
     Dates: start: 20180319
  12. CLONIDINE [Suspect]
     Active Substance: CLONIDINE
     Dosage: 90.02 ?G, \DAY
     Route: 037
  13. CLONIDINE [Suspect]
     Active Substance: CLONIDINE
     Dosage: 111.85 ?G, \DAY MAX
     Route: 037
  14. CLONIDINE [Suspect]
     Active Substance: CLONIDINE
     Dosage: 107.82 ?G, \DAY
     Route: 037
     Dates: start: 20180319
  15. CLONIDINE [Suspect]
     Active Substance: CLONIDINE
     Dosage: 129.21 ?G, \DAY, MAX
     Route: 037
     Dates: start: 20180319
  16. MORPHINE [Suspect]
     Active Substance: MORPHINE
     Dosage: 1.797 MG, \DAY
     Route: 037
     Dates: start: 20180319
  17. MORPHINE [Suspect]
     Active Substance: MORPHINE
     Dosage: 2.153 MG, \DAY, MAX
     Route: 037
     Dates: start: 20180319
  18. MORPHINE [Suspect]
     Active Substance: MORPHINE
     Dosage: 1.500 MG, \DAY
     Route: 037
  19. MORPHINE [Suspect]
     Active Substance: MORPHINE
     Dosage: 1.864 MG, \DAY
     Route: 037

REACTIONS (7)
  - Drug withdrawal syndrome [Recovered/Resolved]
  - Pain [Recovered/Resolved]
  - Implant site pain [Unknown]
  - Chills [None]
  - Yawning [Recovered/Resolved]
  - Diarrhoea [Recovered/Resolved]
  - Anxiety [Recovered/Resolved]

NARRATIVE: CASE EVENT DATE: 20180220
